FAERS Safety Report 6139485-1 (Version None)
Quarter: 2009Q1

REPORT INFORMATION
  Report Type: 
  Country: None (occurrence: None)
  Receive Date: 20090324
  Receipt Date: 20090317
  Transmission Date: 20090719
  Serious: Yes (Hospitalization)
  Sender: FDA-Public Use
  Company Number: US-1168983

PATIENT
  Age: 55 Year
  Sex: Male

DRUGS (1)
  1. ECONOPRED PLUS 0.1 % OPHTHALMIC SUSPENSION [Suspect]
     Indication: PHOTOREFRACTIVE KERATECTOMY
     Dosage: (3-4 GTT PER DAY OPHTHALMIC)
     Route: 047
     Dates: start: 20081222

REACTIONS (8)
  - AGITATION [None]
  - AMNESIA [None]
  - DELUSION [None]
  - DRUG INEFFECTIVE [None]
  - HALLUCINATION, VISUAL [None]
  - INSOMNIA [None]
  - PARANOIA [None]
  - PSYCHOTIC DISORDER [None]
